FAERS Safety Report 9696128 (Version 2)
Quarter: 2013Q4

REPORT INFORMATION
  Report Type: Spontaneous
  Country: ZA (occurrence: ZA)
  Receive Date: 20131119
  Receipt Date: 20131119
  Transmission Date: 20140711
  Serious: Yes (Hospitalization, Other)
  Sender: FDA-Public Use
  Company Number: ZA-PFIZER INC-2013315968

PATIENT
  Age: 43 Year
  Sex: Female

DRUGS (4)
  1. LYRICA [Suspect]
     Indication: LIMB DISCOMFORT
     Dosage: 150 MG, 1X/DAY
  2. LYRICA [Suspect]
     Dosage: 300 MG, 1X/DAY
     Route: 048
     Dates: start: 201304
  3. LYRICA [Suspect]
     Dosage: 150MG,DAILY (TWO CAPSULES 75MG
  4. PREMARIN [Concomitant]
     Indication: HORMONE REPLACEMENT THERAPY
     Dosage: UNK
     Route: 048

REACTIONS (10)
  - Off label use [Unknown]
  - Pancreatitis [Unknown]
  - Food poisoning [Unknown]
  - Swelling [Not Recovered/Not Resolved]
  - Abdominal discomfort [Not Recovered/Not Resolved]
  - Muscle spasms [Not Recovered/Not Resolved]
  - Nausea [Not Recovered/Not Resolved]
  - Fatigue [Not Recovered/Not Resolved]
  - Malaise [Unknown]
  - Listless [Unknown]
